FAERS Safety Report 7125015-4 (Version None)
Quarter: 2010Q4

REPORT INFORMATION
  Report Type: 
  Country: None (occurrence: None)
  Receive Date: 20101129
  Receipt Date: 20101117
  Transmission Date: 20110411
  Serious: Yes (Hospitalization)
  Sender: FDA-Public Use
  Company Number: DE-SANOFI-AVENTIS-2010SA063059

PATIENT
  Age: 74 Year
  Sex: Male

DRUGS (14)
  1. OXALIPLATIN [Suspect]
     Route: 041
     Dates: start: 20100913, end: 20100913
  2. OXALIPLATIN [Suspect]
     Route: 041
     Dates: start: 20100928, end: 20100928
  3. BEVACIZUMAB [Suspect]
     Route: 041
     Dates: start: 20100916, end: 20100916
  4. FLUOROURACIL [Suspect]
     Route: 041
     Dates: start: 20100913, end: 20100914
  5. FLUOROURACIL [Suspect]
     Route: 041
     Dates: start: 20100929, end: 20100930
  6. FLUOROURACIL [Suspect]
     Route: 041
  7. FOLINIC ACID [Suspect]
     Route: 041
     Dates: start: 20100913, end: 20100914
  8. FOLINIC ACID [Suspect]
     Route: 041
     Dates: start: 20100929, end: 20100930
  9. FOLINIC ACID [Suspect]
     Route: 041
  10. ONDANSETRON [Concomitant]
     Dates: start: 20100913
  11. INSULIN [Concomitant]
  12. ALL OTHER THERAPEUTIC PRODUCTS [Concomitant]
  13. AMLODIPINE [Concomitant]
     Dates: start: 20101001
  14. HUMAN ACTRAPHANE [Concomitant]
     Dates: start: 20101001

REACTIONS (2)
  - HYPERTENSIVE CRISIS [None]
  - VOMITING [None]
